FAERS Safety Report 19617775 (Version 1)
Quarter: 2021Q3

REPORT INFORMATION
  Report Type: Spontaneous
  Country: CA (occurrence: CA)
  Receive Date: 20210727
  Receipt Date: 20210727
  Transmission Date: 20211014
  Serious: Yes (Death)
  Sender: FDA-Public Use
  Company Number: CA-IGSA-BIG0015382

PATIENT
  Age: 77 Year
  Sex: Male

DRUGS (2)
  1. ALBUMIN (HUMAN) [Suspect]
     Active Substance: ALBUMIN HUMAN
     Indication: HYPOALBUMINAEMIA
     Dosage: 500 MILLILITER, TID
     Route: 042
  2. SALINE [SODIUM CHLORIDE] [Concomitant]
     Active Substance: SODIUM CHLORIDE

REACTIONS (3)
  - Hypoxia [Fatal]
  - Tachypnoea [Fatal]
  - Dyspnoea [Fatal]
